FAERS Safety Report 7545793-X (Version None)
Quarter: 2011Q2

REPORT INFORMATION
  Report Type: 
  Country: None (occurrence: None)
  Receive Date: 20110613
  Receipt Date: 20110613
  Transmission Date: 20111010
  Serious: Yes (Hospitalization)
  Sender: FDA-Public Use
  Company Number: None

PATIENT
  Sex: Male

DRUGS (1)
  1. TISSUE PLASINOGEN ACTIVATOR TPA [Suspect]
     Indication: THROMBOSIS
     Dates: start: 20110525, end: 20110525

REACTIONS (1)
  - ANAPHYLACTIC SHOCK [None]
